FAERS Safety Report 9887173 (Version 2)
Quarter: 2014Q2

REPORT INFORMATION
  Report Type: Spontaneous
  Country: US (occurrence: US)
  Receive Date: 20140211
  Receipt Date: 20140421
  Transmission Date: 20141212
  Serious: No
  Sender: FDA-Public Use
  Company Number: US-BIOGENIDEC-2014BI009703

PATIENT
  Sex: Female

DRUGS (11)
  1. TECFIDERA [Suspect]
     Indication: MULTIPLE SCLEROSIS
     Route: 048
     Dates: start: 201301
  2. TECFIDERA [Suspect]
     Indication: MULTIPLE SCLEROSIS
     Route: 048
     Dates: start: 201301
  3. AMPYRA [Concomitant]
     Indication: MULTIPLE SCLEROSIS
     Route: 048
     Dates: start: 20130624
  4. OXYTROL [Concomitant]
  5. SERTRALINE HCL [Concomitant]
  6. CYCLOBENZAPRINE HCL [Concomitant]
  7. FISH OIL [Concomitant]
  8. VITAMIN C [Concomitant]
  9. VITAMIN D [Concomitant]
  10. BACLOFEN [Concomitant]
  11. TRAZODONE HCL [Concomitant]

REACTIONS (11)
  - Muscular weakness [Unknown]
  - Gait disturbance [Unknown]
  - Mobility decreased [Unknown]
  - Fall [Recovered/Resolved]
  - Periorbital contusion [Unknown]
  - Dysstasia [Unknown]
  - Pain in extremity [Unknown]
  - Mouth injury [Unknown]
  - Memory impairment [Unknown]
  - Balance disorder [Unknown]
  - Drug ineffective [Unknown]
